FAERS Safety Report 4633106-2 (Version None)
Quarter: 2005Q2

REPORT INFORMATION
  Report Type: 
  Country: None (occurrence: None)
  Receive Date: 20050412
  Receipt Date: 20050328
  Transmission Date: 20051028
  Serious: Yes (Hospitalization)
  Sender: FDA-Public Use
  Company Number: US-GLAXOSMITHKLINE-A0551487A

PATIENT
  Age: 55 Year
  Sex: Male

DRUGS (18)
  1. ADVAIR DISKUS 100/50 [Suspect]
     Indication: DYSPNOEA
     Dosage: 1PUFF TWICE PER DAY
     Route: 055
     Dates: start: 20050228, end: 20050302
  2. INSULIN [Concomitant]
  3. COREG [Concomitant]
  4. WARFARIN SODIUM [Concomitant]
  5. FLOMAX [Concomitant]
  6. TORSEMIDE [Concomitant]
  7. PACERONE [Concomitant]
  8. LISINOPRIL [Concomitant]
  9. NEXIUM [Concomitant]
  10. ZOLOFT [Concomitant]
  11. K-DUR 10 [Concomitant]
  12. EFFEXOR [Concomitant]
  13. PRANDIN [Concomitant]
  14. FISH OIL [Concomitant]
  15. VITAMIN B COMPLEX CAP [Concomitant]
  16. CENTRUM [Concomitant]
  17. VITAMIN C [Concomitant]
  18. VYTORIN [Concomitant]

REACTIONS (7)
  - BALANCE DISORDER [None]
  - CHRONIC OBSTRUCTIVE PULMONARY DISEASE [None]
  - DRUG HYPERSENSITIVITY [None]
  - DYSPNOEA EXACERBATED [None]
  - PNEUMONIA [None]
  - TREMOR [None]
  - VERTIGO [None]
